FAERS Safety Report 9381302 (Version 2)
Quarter: 2013Q3

REPORT INFORMATION
  Report Type: Report from Study
  Country: CA (occurrence: CA)
  Receive Date: 20130703
  Receipt Date: 20130711
  Transmission Date: 20140515
  Serious: Yes (Other)
  Sender: FDA-Public Use
  Company Number: CA-ROCHE-1244108

PATIENT
  Age: 70 Year
  Sex: Female
  Weight: 63.5 kg

DRUGS (12)
  1. RITUXAN [Suspect]
     Indication: RHEUMATOID ARTHRITIS
     Dosage: DAY 1 AND DAY 15
     Route: 042
     Dates: start: 20130627, end: 20130627
  2. BENADRYL [Suspect]
     Indication: PRODUCT USED FOR UNKNOWN INDICATION
     Route: 042
     Dates: start: 20130627, end: 20130627
  3. ACETAMINOPHEN [Concomitant]
     Indication: PREMEDICATION
     Route: 048
     Dates: start: 20130627, end: 20130627
  4. DIAMICRON [Concomitant]
     Route: 065
  5. JANUVIA [Concomitant]
     Route: 065
  6. METFORMIN [Concomitant]
     Route: 065
  7. MICARDIS [Concomitant]
     Dosage: DAILY
     Route: 065
  8. FOSAVANCE [Concomitant]
     Route: 065
  9. METHOTREXATE [Concomitant]
     Route: 065
  10. PREDNISOLON [Concomitant]
     Route: 065
  11. FOLIC ACID [Concomitant]
  12. PIOGLITAZONE [Concomitant]
     Dosage: DAILY
     Route: 065

REACTIONS (5)
  - Chest pain [Recovered/Resolved]
  - Pruritus [Recovered/Resolved]
  - Erythema [Recovered/Resolved]
  - Hypotension [Not Recovered/Not Resolved]
  - Fatigue [Not Recovered/Not Resolved]
